FAERS Safety Report 7651469-0 (Version None)
Quarter: 2011Q3

REPORT INFORMATION
  Report Type: 
  Country: None (occurrence: None)
  Receive Date: 20110802
  Receipt Date: 20110727
  Transmission Date: 20111222
  Serious: Yes (Hospitalization)
  Sender: FDA-Public Use
  Company Number: PHHO2011FR12882

PATIENT
  Sex: Male
  Weight: 68.4 kg

DRUGS (3)
  1. CELLCEPT [Suspect]
     Indication: RENAL TRANSPLANT
     Dosage: 2 G, UNK
     Route: 048
     Dates: start: 20110607
  2. PREDNISONE [Suspect]
     Dosage: 40 MG, UNK
     Route: 048
     Dates: start: 20110607
  3. NEORAL [Suspect]
     Indication: RENAL TRANSPLANT
     Dosage: 440 MG, UNK
     Route: 048
     Dates: start: 20110608

REACTIONS (3)
  - ABSCESS [None]
  - DIVERTICULUM [None]
  - PERITONITIS BACTERIAL [None]
